FAERS Safety Report 16539120 (Version 2)
Quarter: 2020Q2

REPORT INFORMATION
  Report Type: Spontaneous
  Country: US (occurrence: US)
  Receive Date: 20190708
  Receipt Date: 20200626
  Transmission Date: 20200713
  Serious: Yes (Hospitalization, Other)
  Sender: FDA-Public Use
  Company Number: US-SUN PHARMACEUTICAL INDUSTRIES LTD-2019R1-213084

PATIENT
  Age: 49 Year
  Sex: Male

DRUGS (3)
  1. OXANDROLONE. [Suspect]
     Active Substance: OXANDROLONE
     Indication: PRODUCT USED FOR UNKNOWN INDICATION
     Dosage: UNK
     Route: 065
  2. TRENBOLONE [Suspect]
     Active Substance: TRENBOLONE
     Indication: PRODUCT USED FOR UNKNOWN INDICATION
     Dosage: UNK
     Route: 065
  3. TESTOSTERONE. [Suspect]
     Active Substance: TESTOSTERONE
     Indication: PRODUCT USED FOR UNKNOWN INDICATION
     Dosage: UNK
     Route: 065

REACTIONS (7)
  - Ischaemic stroke [Recovering/Resolving]
  - Hyperlipidaemia [Recovering/Resolving]
  - Gerstmann^s syndrome [Recovering/Resolving]
  - Haemorrhagic transformation stroke [Recovering/Resolving]
  - Acute kidney injury [Recovering/Resolving]
  - Hypercoagulation [Recovering/Resolving]
  - Polycythaemia [Recovering/Resolving]
